FAERS Safety Report 23230311 (Version 1)
Quarter: 2023Q4

REPORT INFORMATION
  Report Type: Spontaneous
  Country: ES (occurrence: ES)
  Receive Date: 20231127
  Receipt Date: 20231127
  Transmission Date: 20240109
  Serious: Yes (Hospitalization, Other)
  Sender: FDA-Public Use
  Company Number: ES-MLMSERVICE-20231113-4659028-1

PATIENT
  Age: 52 Year
  Sex: Male

DRUGS (4)
  1. CYPROTERONE ACETATE [Suspect]
     Active Substance: CYPROTERONE ACETATE
     Indication: Hormone therapy
  2. CYPROTERONE ACETATE [Suspect]
     Active Substance: CYPROTERONE ACETATE
     Indication: Gender dysphoria
  3. ESTRADIOL [Suspect]
     Active Substance: ESTRADIOL
     Indication: Hormone therapy
     Dosage: ESTRADIOL PATCHES 100 MICROGRAMS EVERY 3 DAYS
     Route: 062
  4. ESTRADIOL [Suspect]
     Active Substance: ESTRADIOL
     Indication: Gender dysphoria

REACTIONS (1)
  - Meningioma [Recovered/Resolved]
